FAERS Safety Report 11244078 (Version 3)
Quarter: 2015Q4

REPORT INFORMATION
  Report Type: Spontaneous
  Country: US (occurrence: US)
  Receive Date: 20150707
  Receipt Date: 20151009
  Transmission Date: 20160304
  Serious: Yes (Hospitalization, Other)
  Sender: FDA-Public Use
  Company Number: US-PFIZER INC-2015219919

PATIENT
  Age: 75 Year
  Sex: Male

DRUGS (4)
  1. CAMPTOSAR [Suspect]
     Active Substance: IRINOTECAN HYDROCHLORIDE
     Indication: COLON CANCER METASTATIC
     Dosage: 180 MG/M2, (430MG) Q 2 WK
     Route: 042
     Dates: start: 20150601
  2. LEUCOVORIN. [Concomitant]
     Active Substance: LEUCOVORIN
     Indication: COLON CANCER METASTATIC
     Dosage: 960MG IV Q 2 WK
     Route: 042
     Dates: start: 20150601, end: 20150617
  3. 5-FU /00098801/ [Concomitant]
     Active Substance: FLUOROURACIL
     Indication: COLON CANCER METASTATIC
     Dosage: 950 MG, IV PUSH Q 2 WK
     Route: 040
     Dates: start: 20150601, end: 20150617
  4. 5-FU /00098801/ [Concomitant]
     Active Substance: FLUOROURACIL
     Dosage: 5710 MG, CIV OVER 46 HRS. Q 2 WK
     Route: 041
     Dates: start: 20150601, end: 20150617

REACTIONS (6)
  - Colon cancer metastatic [Unknown]
  - Pneumonia klebsiella [Unknown]
  - Hyperbilirubinaemia [Recovered/Resolved]
  - Disease progression [Unknown]
  - Cell marker increased [Unknown]
  - Liver function test abnormal [Recovered/Resolved]

NARRATIVE: CASE EVENT DATE: 20150616
